FAERS Safety Report 25344986 (Version 1)
Quarter: 2025Q2

REPORT INFORMATION
  Report Type: Other
  Country: SE (occurrence: SE)
  Receive Date: 20250522
  Receipt Date: 20250522
  Transmission Date: 20250716
  Serious: Yes (Life-Threatening, Other)
  Sender: ANI
  Company Number: SE-ANIPHARMA-022826

PATIENT
  Age: 57 Year
  Sex: Male

DRUGS (3)
  1. CLEMASTINE [Suspect]
     Active Substance: CLEMASTINE
     Indication: Antiallergic therapy
  2. CYCLOPHOSPHAMIDE [Suspect]
     Active Substance: CYCLOPHOSPHAMIDE
     Indication: Follicular lymphoma
  3. FLUDARABINE [Concomitant]
     Active Substance: FLUDARABINE PHOSPHATE
     Indication: Follicular lymphoma

REACTIONS (3)
  - Neutropenia [Recovered/Resolved]
  - Hypotension [Recovered/Resolved]
  - Somnolence [Recovered/Resolved]
